FAERS Safety Report 19376827 (Version 1)
Quarter: 2021Q2

REPORT INFORMATION
  Report Type: Spontaneous
  Country: US (occurrence: US)
  Receive Date: 20210605
  Receipt Date: 20210605
  Transmission Date: 20210717
  Serious: No
  Sender: FDA-Public Use
  Company Number: US-GLAXOSMITHKLINE-US2021115358

PATIENT
  Sex: Female

DRUGS (1)
  1. VENTOLIN HFA [Suspect]
     Active Substance: ALBUTEROL SULFATE
     Indication: CHRONIC OBSTRUCTIVE PULMONARY DISEASE
     Dosage: 1 PUFF(S), QID
     Route: 055

REACTIONS (6)
  - Taste disorder [Unknown]
  - Off label use [Unknown]
  - Product complaint [Unknown]
  - Drug ineffective [Unknown]
  - Upper respiratory tract congestion [Unknown]
  - Dyspnoea [Unknown]
